FAERS Safety Report 23656895 (Version 2)
Quarter: 2024Q3

REPORT INFORMATION
  Report Type: Report from Study
  Country: US (occurrence: US)
  Receive Date: 20240321
  Receipt Date: 20240809
  Transmission Date: 20241017
  Serious: Yes (Other)
  Sender: NOVARTIS
  Company Number: US-002147023-NVSC2024US056830

PATIENT
  Sex: Female

DRUGS (1)
  1. KISQALI [Suspect]
     Active Substance: RIBOCICLIB
     Indication: Product used for unknown indication
     Dosage: UNK
     Route: 065

REACTIONS (10)
  - Neoplasm malignant [Unknown]
  - Hot flush [Unknown]
  - Constipation [Unknown]
  - Pain in extremity [Unknown]
  - Eye pruritus [Unknown]
  - Insomnia [Unknown]
  - Flatulence [Unknown]
  - Bone pain [Unknown]
  - Pruritus [Unknown]
  - Anal pruritus [Unknown]
